FAERS Safety Report 12199745 (Version 1)
Quarter: 2016Q1

REPORT INFORMATION
  Report Type: Spontaneous
  Country: JP (occurrence: JP)
  Receive Date: 20160322
  Receipt Date: 20160322
  Transmission Date: 20160526
  Serious: Yes (Other)
  Sender: FDA-Public Use
  Company Number: JP-ASTRAZENECA-2016SE29258

PATIENT
  Age: 59 Year
  Sex: Female

DRUGS (1)
  1. ZOMIG [Suspect]
     Active Substance: ZOLMITRIPTAN
     Dosage: AS NEEDED
     Route: 048

REACTIONS (2)
  - Erythema multiforme [Unknown]
  - Blister [Unknown]

NARRATIVE: CASE EVENT DATE: 2015
